FAERS Safety Report 10715771 (Version 2)
Quarter: 2015Q1

REPORT INFORMATION
  Report Type: Spontaneous
  Country: IT (occurrence: IT)
  Receive Date: 20150116
  Receipt Date: 20150123
  Transmission Date: 20150721
  Serious: Yes (Other)
  Sender: FDA-Public Use
  Company Number: IT-AUROBINDO-AUR-APL-2015-00240

PATIENT
  Age: 6 Month
  Sex: Male

DRUGS (1)
  1. AMOXICILLIN. [Suspect]
     Active Substance: AMOXICILLIN
     Indication: PRODUCT USED FOR UNKNOWN INDICATION
     Dosage: 3 DF, DAILY
     Route: 048
     Dates: start: 20150104, end: 20150109

REACTIONS (3)
  - Drug ineffective [Recovering/Resolving]
  - Bronchiolitis [Recovering/Resolving]
  - Bronchopneumonia [Recovering/Resolving]

NARRATIVE: CASE EVENT DATE: 20150109
